FAERS Safety Report 24790141 (Version 1)
Quarter: 2024Q4

REPORT INFORMATION
  Report Type: Spontaneous
  Country: US (occurrence: US)
  Receive Date: 20241230
  Receipt Date: 20241230
  Transmission Date: 20250115
  Serious: No
  Sender: ROCHE
  Company Number: US-ROCHE-10000164437

PATIENT
  Age: 31 Year
  Sex: Female

DRUGS (5)
  1. XOLAIR [Suspect]
     Active Substance: OMALIZUMAB
     Indication: Asthma
     Dosage: ONE AUTO INJECTOR PER MONTH, EVERY 4 WEEKS
     Route: 058
     Dates: start: 202411
  2. XOLAIR [Suspect]
     Active Substance: OMALIZUMAB
     Indication: Asthma
     Dosage: THERAPY STARTED IN JUN/JUL-2024
     Route: 058
  3. XOLAIR [Suspect]
     Active Substance: OMALIZUMAB
     Indication: Asthma
     Dosage: THERAPY ENDED IN JUN/JUL-2024
     Route: 065
  4. SINGULAIR [Concomitant]
     Active Substance: MONTELUKAST SODIUM
     Indication: Asthma
     Dosage: ONGOING- NO
  5. ALBUTEROL SULFATE [Concomitant]
     Active Substance: ALBUTEROL SULFATE
     Indication: Asthma
     Dosage: 2 PUFFS, AS NEEDED
     Route: 055

REACTIONS (5)
  - Device defective [Unknown]
  - Product impurity [Unknown]
  - No adverse event [Unknown]
  - Product quality issue [Unknown]
  - Product dose omission issue [Unknown]

NARRATIVE: CASE EVENT DATE: 20241219
